FAERS Safety Report 8044853-7 (Version None)
Quarter: 2012Q1

REPORT INFORMATION
  Report Type: 
  Country: None (occurrence: None)
  Receive Date: 20120113
  Receipt Date: 20120110
  Transmission Date: 20120608
  Serious: Yes (Other)
  Sender: FDA-Public Use
  Company Number: US-JNJFOC-20111209952

PATIENT
  Sex: Male
  Weight: 86.18 kg

DRUGS (3)
  1. STELARA [Suspect]
     Route: 058
     Dates: start: 20110928
  2. STELARA [Suspect]
     Indication: PSORIASIS
     Route: 058
     Dates: start: 20110617
  3. STELARA [Suspect]
     Route: 058
     Dates: start: 20110520

REACTIONS (3)
  - HEADACHE [None]
  - ARTHRALGIA [None]
  - MYALGIA [None]
